FAERS Safety Report 19553971 (Version 1)
Quarter: 2021Q3

REPORT INFORMATION
  Report Type: Spontaneous
  Country: KR (occurrence: KR)
  Receive Date: 20210715
  Receipt Date: 20210715
  Transmission Date: 20211014
  Serious: Yes (Other)
  Sender: FDA-Public Use
  Company Number: KR-GLAXOSMITHKLINE-KR2021APC151120

PATIENT

DRUGS (1)
  1. REQUIP PD 24 HOUR [Suspect]
     Active Substance: ROPINIROLE HYDROCHLORIDE
     Indication: PARKINSON^S DISEASE
     Dosage: 2 MG, QID
     Route: 048

REACTIONS (9)
  - Tinnitus [Unknown]
  - Somnolence [Unknown]
  - Asthenia [Unknown]
  - Head discomfort [Unknown]
  - Dizziness [Unknown]
  - Depressed level of consciousness [Unknown]
  - Chest discomfort [Unknown]
  - Fatigue [Unknown]
  - Product use issue [Unknown]

NARRATIVE: CASE EVENT DATE: 202106
